FAERS Safety Report 4675291-2 (Version None)
Quarter: 2005Q2

REPORT INFORMATION
  Report Type: 
  Country: None (occurrence: None)
  Receive Date: 20050527
  Receipt Date: 20050304
  Transmission Date: 20051028
  Serious: Yes (Other)
  Sender: FDA-Public Use
  Company Number: PHNU2005DE01218

PATIENT
  Age: 66 Year
  Sex: Male
  Weight: 75 kg

DRUGS (3)
  1. MARCUMAR [Suspect]
     Indication: SURGERY
     Dosage: 1.5DF/DAY AND 2X PER WEEK 1DF
     Route: 048
     Dates: start: 19990301
  2. METOPROLOL SUCCINATE [Concomitant]
     Route: 048
     Dates: start: 19990301
  3. LOCOL [Suspect]
     Indication: HYPERCHOLESTEROLAEMIA
     Dosage: 40 MG, QD
     Route: 048
     Dates: start: 20041125, end: 20050401

REACTIONS (7)
  - ARRHYTHMIA [None]
  - BLOOD PRESSURE INCREASED [None]
  - DRUG INTERACTION [None]
  - INTERNATIONAL NORMALISED RATIO INCREASED [None]
  - IRRITABILITY [None]
  - MYALGIA [None]
  - SLEEP DISORDER [None]
